FAERS Safety Report 5473094-2 (Version None)
Quarter: 2007Q4

REPORT INFORMATION
  Report Type: 
  Country: None (occurrence: None)
  Receive Date: 20071001
  Receipt Date: 20070416
  Transmission Date: 20080405
  Serious: No
  Sender: FDA-Public Use
  Company Number: US-ASTRAZENECA-2007UW07473

PATIENT
  Sex: Male

DRUGS (2)
  1. ARIMIDEX [Suspect]
     Route: 048
     Dates: start: 19980101
  2. GROWTH HORMONE [Concomitant]

REACTIONS (2)
  - BODY MASS INDEX DECREASED [None]
  - UNDERWEIGHT [None]
